FAERS Safety Report 11820722 (Version 2)
Quarter: 2016Q1

REPORT INFORMATION
  Report Type: Spontaneous
  Country: US (occurrence: US)
  Receive Date: 20151210
  Receipt Date: 20160209
  Transmission Date: 20160525
  Serious: Yes (Hospitalization)
  Sender: FDA-Public Use
  Company Number: US-ELI_LILLY_AND_COMPANY-US201512000995

PATIENT
  Age: 40 Year
  Sex: Male
  Weight: 99.79 kg

DRUGS (1)
  1. AXIRON [Suspect]
     Active Substance: TESTOSTERONE
     Indication: ANDROGEN REPLACEMENT THERAPY
     Dosage: UNK, UNKNOWN
     Route: 065
     Dates: start: 201212, end: 201312

REACTIONS (5)
  - Cerebrovascular disorder [Unknown]
  - Migraine [Recovered/Resolved]
  - Hyperlipidaemia [Unknown]
  - Sinus tachycardia [Unknown]
  - Transient ischaemic attack [Unknown]

NARRATIVE: CASE EVENT DATE: 20131214
